FAERS Safety Report 5979929-9 (Version None)
Quarter: 2008Q4

REPORT INFORMATION
  Report Type: 
  Country: None (occurrence: None)
  Receive Date: 20081205
  Receipt Date: 20081202
  Transmission Date: 20090506
  Serious: Yes (Hospitalization, Other)
  Sender: FDA-Public Use
  Company Number: FR-BRISTOL-MYERS SQUIBB COMPANY-14430243

PATIENT
  Age: 76 Year
  Sex: Female

DRUGS (15)
  1. ELISOR TABS [Suspect]
     Dosage: 1 TAB DAILY
     Route: 048
     Dates: start: 20050501, end: 20080711
  2. APROVEL TABS 150 MG [Suspect]
     Dosage: DF=TABS
     Route: 048
  3. NEXIUM [Suspect]
     Dosage: 1 TAB DAILY
     Route: 048
  4. SECTRAL [Suspect]
     Dosage: 1/2 TABLET DAILY
     Route: 048
     Dates: start: 20080501
  5. ALFACALCIDOL [Suspect]
  6. INIPOMP [Suspect]
  7. LOXEN [Concomitant]
     Route: 048
  8. CORDARONE [Concomitant]
     Dosage: DF = UNITS
     Route: 048
  9. LASIX [Concomitant]
     Dosage: DF = TABS STRENGTH = 500MG
     Route: 048
  10. EUPRESSYL [Concomitant]
     Dosage: DF=CAPS STRENGTH=60MG
     Route: 048
  11. SEROPRAM [Concomitant]
     Dosage: 1 DF = 1/2 UNIT
     Route: 048
  12. ATARAX [Concomitant]
     Dosage: 1 TAB DAILY
     Route: 048
  13. PLAVIX [Concomitant]
     Route: 048
  14. KARDEGIC [Concomitant]
     Dosage: 1 SACHET DAILY
     Route: 048
  15. VASTAREL [Concomitant]
     Dosage: DF=TABS STRENGTH=35MG TABS
     Route: 048

REACTIONS (2)
  - DERMATITIS EXFOLIATIVE [None]
  - RENAL FAILURE [None]
